FAERS Safety Report 10506009 (Version 1)
Quarter: 2014Q4

REPORT INFORMATION
  Report Type: Spontaneous
  Country: US (occurrence: US)
  Receive Date: 20141008
  Receipt Date: 20141008
  Transmission Date: 20150528
  Serious: Yes (Hospitalization)
  Sender: FDA-Public Use
  Company Number: US-009507513-1410USA003106

PATIENT
  Weight: 117.91 kg

DRUGS (1)
  1. SINGULAIR [Suspect]
     Active Substance: MONTELUKAST SODIUM
     Dosage: 20 MG ONCE DAILY
     Route: 048

REACTIONS (3)
  - Overdose [Unknown]
  - Drug prescribing error [Unknown]
  - Adverse event [Unknown]
